FAERS Safety Report 7802537-1 (Version None)
Quarter: 2011Q4

REPORT INFORMATION
  Report Type: 
  Country: None (occurrence: None)
  Receive Date: 20111007
  Receipt Date: 20110922
  Transmission Date: 20120403
  Serious: Yes (Hospitalization)
  Sender: FDA-Public Use
  Company Number: CO-ROCHE-786716

PATIENT
  Sex: Male

DRUGS (2)
  1. MABTHERA [Suspect]
     Dosage: 400 MG EVERY 8 MONTHS
     Route: 042
  2. MABTHERA [Suspect]
     Indication: THROMBOCYTOPENIC PURPURA
     Route: 042
     Dates: start: 20100429, end: 20100429

REACTIONS (3)
  - MOUTH HAEMORRHAGE [None]
  - THROMBOCYTOPENIA [None]
  - OEDEMA [None]
